FAERS Safety Report 8792111 (Version 1)
Quarter: 2012Q4

REPORT INFORMATION
  Report Type: Report from Study
  Country: AU (occurrence: AU)
  Receive Date: 20120918
  Receipt Date: 20120918
  Transmission Date: 20130627
  Serious: Yes (Death, Other)
  Sender: FDA-Public Use
  Company Number: AU-SANOFI-AVENTIS-2012SA067899

PATIENT

DRUGS (2)
  1. DOCETAXEL [Suspect]
     Indication: METASTATIC BREAST CANCER
     Dosage: administered over 1 hour on day 1 of every 21 day cycle
     Route: 042
  2. ANTINEOPLASTIC AGENTS [Suspect]
     Indication: METASTATIC BREAST CANCER
     Dosage: from day 3 of the cycle 1 and then from day 1 of subsequent cycles, with each cycle of 21 days
     Route: 048

REACTIONS (2)
  - Multi-organ failure [Fatal]
  - Hyperbilirubinaemia [Unknown]
